FAERS Safety Report 9628703 (Version 2)
Quarter: 2013Q4

REPORT INFORMATION
  Report Type: Spontaneous
  Country: US (occurrence: US)
  Receive Date: 20131017
  Receipt Date: 20131021
  Transmission Date: 20140711
  Serious: No
  Sender: FDA-Public Use
  Company Number: US-009507513-1309USA009720

PATIENT
  Age: 34 Year
  Sex: Female
  Weight: 86.17 kg

DRUGS (1)
  1. NEXPLANON [Suspect]
     Indication: CONTRACEPTION
     Dosage: 1 ROD,EVERY 3 YEARS
     Route: 059
     Dates: start: 20121008

REACTIONS (4)
  - Menstruation irregular [Unknown]
  - Amenorrhoea [Unknown]
  - Menorrhagia [Unknown]
  - Metrorrhagia [Unknown]
